FAERS Safety Report 18822722 (Version 1)
Quarter: 2021Q1

REPORT INFORMATION
  Report Type: Spontaneous
  Country: NO (occurrence: NO)
  Receive Date: 20210202
  Receipt Date: 20210202
  Transmission Date: 20210419
  Serious: Yes (Disabling)
  Sender: FDA-Public Use
  Company Number: NVSC2021NO023025

PATIENT
  Age: 53 Year
  Sex: Male
  Weight: 105 kg

DRUGS (3)
  1. QUETIAPIN SANDOZ [Suspect]
     Active Substance: QUETIAPINE
     Indication: INSOMNIA
     Dosage: 0.5 DF (PATIENT USED A HALF AND A QUARTER TABLET FOR ABOUT 3 MONTHS IN 2019)
     Route: 048
     Dates: start: 20190625, end: 201909
  2. QUETIAPIN SANDOZ [Suspect]
     Active Substance: QUETIAPINE
     Dosage: 0.25 DF (PATIENT TOOK 1/2 AND 1/4 TABLET FOR ABOUT 3 MONTHS IN //2019)
     Route: 048
     Dates: start: 20190625, end: 201909
  3. VITAMIN D [Concomitant]
     Active Substance: VITAMIN D NOS
     Indication: PRODUCT USED FOR UNKNOWN INDICATION
     Dosage: UNK (AS DESCRIBED BY DOCTOR, BOUGHT AT A PHARMACY)
     Route: 065

REACTIONS (3)
  - Mood altered [Unknown]
  - Sensory loss [Recovered/Resolved with Sequelae]
  - Balance disorder [Unknown]

NARRATIVE: CASE EVENT DATE: 201908
